FAERS Safety Report 22377408 (Version 2)
Quarter: 2025Q2

REPORT INFORMATION
  Report Type: Report from Study
  Country: MX (occurrence: MX)
  Receive Date: 20230529
  Receipt Date: 20250408
  Transmission Date: 20250717
  Serious: Yes (Other)
  Sender: NOVARTIS
  Company Number: MX-002147023-NVSC2023MX120236

PATIENT
  Sex: Male
  Weight: 117 kg

DRUGS (1)
  1. IMATINIB [Suspect]
     Active Substance: IMATINIB
     Indication: Chronic myeloid leukaemia
     Route: 048

REACTIONS (13)
  - Diabetes mellitus [Unknown]
  - Cholelithiasis [Unknown]
  - Bone pain [Unknown]
  - Discomfort [Unknown]
  - Malaise [Unknown]
  - Cytogenetic analysis abnormal [Unknown]
  - Impaired healing [Unknown]
  - Coagulopathy [Unknown]
  - Renal disorder [Unknown]
  - Anxiety [Unknown]
  - Sleep disorder [Unknown]
  - Mood altered [Unknown]
  - Acne [Unknown]
